FAERS Safety Report 20896526 (Version 6)
Quarter: 2023Q1

REPORT INFORMATION
  Report Type: Other
  Country: MX (occurrence: None)
  Receive Date: 20220531
  Receipt Date: 20230221
  Transmission Date: 20230417
  Serious: Yes (Hospitalization)
  Sender: FDA-Public Use
  Company Number: MX-ROCHE-3103035

PATIENT
  Age: 59 Year
  Sex: Female
  Weight: 70 kg

DRUGS (12)
  1. RITUXIMAB [Suspect]
     Active Substance: RITUXIMAB
     Indication: Rheumatoid arthritis
     Dosage: RITUXIMAB 50 ML
     Route: 041
     Dates: start: 20210428
  2. RITUXIMAB [Suspect]
     Active Substance: RITUXIMAB
     Dosage: RITUXIMAB 50 ML, 1G ON DAY 0 AND 1G ON DAY 15
     Route: 042
     Dates: start: 20210512
  3. RITUXIMAB [Suspect]
     Active Substance: RITUXIMAB
     Dosage: RITUXIMAB 50 ML
     Route: 042
     Dates: start: 202205
  4. DIAZEPAM [Suspect]
     Active Substance: DIAZEPAM
     Indication: Anxiety
     Dosage: 4 DROPS AT NIGHT AND 2 IN THE MORNING FOR 2 DAYS OF HOSPITALIZATION
     Route: 065
     Dates: start: 202107
  5. CELLCEPT [Suspect]
     Active Substance: MYCOPHENOLATE MOFETIL
     Indication: Product used for unknown indication
     Route: 048
     Dates: start: 202208
  6. JANUMET [Concomitant]
     Active Substance: METFORMIN HYDROCHLORIDE\SITAGLIPTIN PHOSPHATE
     Indication: Diabetes mellitus
     Route: 048
  7. ASPIRIN [Concomitant]
     Active Substance: ASPIRIN
     Indication: Hypertension
     Route: 048
  8. METHOTREXATE [Concomitant]
     Active Substance: METHOTREXATE
     Indication: Rheumatoid arthritis
     Dosage: 5 TABLETS
  9. SERC [Concomitant]
  10. DEFLAZACORT [Concomitant]
     Active Substance: DEFLAZACORT
  11. FOLIC ACID [Concomitant]
     Active Substance: FOLIC ACID
     Indication: Rheumatoid arthritis
     Route: 048
  12. INSULIN NOS [Concomitant]
     Active Substance: INSULIN NOS
     Indication: Diabetes mellitus
     Route: 058

REACTIONS (21)
  - COVID-19 [Recovered/Resolved]
  - Anxiety [Recovered/Resolved]
  - Somnolence [Recovered/Resolved]
  - Vision blurred [Not Recovered/Not Resolved]
  - Fatigue [Recovered/Resolved]
  - Asthenopia [Recovered/Resolved]
  - Diarrhoea [Recovered/Resolved]
  - Hypersensitivity [Unknown]
  - Arthritis [Unknown]
  - Sudden onset of sleep [Unknown]
  - Fatigue [Unknown]
  - Musculoskeletal pain [Recovering/Resolving]
  - Coccydynia [Recovering/Resolving]
  - Neck pain [Recovering/Resolving]
  - Arthralgia [Recovering/Resolving]
  - Muscular weakness [Recovering/Resolving]
  - Fatigue [Not Recovered/Not Resolved]
  - Sleep attacks [Not Recovered/Not Resolved]
  - Cholelithiasis [Recovered/Resolved]
  - Constipation [Not Recovered/Not Resolved]
  - Diarrhoea [Not Recovered/Not Resolved]

NARRATIVE: CASE EVENT DATE: 20210701
